FAERS Safety Report 17798110 (Version 1)
Quarter: 2020Q2

REPORT INFORMATION
  Report Type: Spontaneous
  Country: US (occurrence: US)
  Receive Date: 20200517
  Receipt Date: 20200517
  Transmission Date: 20200714
  Serious: Yes (Other)
  Sender: FDA-Public Use
  Company Number: None

PATIENT
  Age: 42 Year
  Sex: Male
  Weight: 135.45 kg

DRUGS (6)
  1. SEROQUEL XR [Suspect]
     Active Substance: QUETIAPINE FUMARATE
     Indication: MENTAL DISORDER
     Dosage: ?          QUANTITY:30 TABLET(S);?
     Route: 048
  2. TRULICITY [Concomitant]
     Active Substance: DULAGLUTIDE
  3. KETO [Concomitant]
  4. NOVOLOG [Concomitant]
     Active Substance: INSULIN ASPART
  5. BASAGULAR 66 UNITS [Concomitant]
  6. SEROQUEL XR [Concomitant]
     Active Substance: QUETIAPINE FUMARATE

REACTIONS (7)
  - Toxicity to various agents [None]
  - Blood glucose increased [None]
  - Fatigue [None]
  - Weight increased [None]
  - Carcinogenicity [None]
  - Product tampering [None]
  - Product coating issue [None]

NARRATIVE: CASE EVENT DATE: 20200507
